FAERS Safety Report 21557032 (Version 1)
Quarter: 2022Q4

REPORT INFORMATION
  Report Type: Spontaneous
  Country: JP (occurrence: JP)
  Receive Date: 20221104
  Receipt Date: 20221104
  Transmission Date: 20230113
  Serious: Yes (Death, Other)
  Sender: FDA-Public Use
  Company Number: JP-TAKEDA-2022TJP076538

PATIENT
  Age: 8 Decade
  Sex: Male

DRUGS (1)
  1. ADCETRIS [Suspect]
     Active Substance: BRENTUXIMAB VEDOTIN
     Indication: Peripheral T-cell lymphoma unspecified
     Dosage: UNK, Q3WEEKS
     Route: 065
     Dates: start: 20221005, end: 20221005

REACTIONS (2)
  - Peripheral T-cell lymphoma unspecified [Fatal]
  - Disease progression [Fatal]

NARRATIVE: CASE EVENT DATE: 20221012
